FAERS Safety Report 7954468-4 (Version None)
Quarter: 2011Q4

REPORT INFORMATION
  Report Type: 
  Country: None (occurrence: None)
  Receive Date: 20111202
  Receipt Date: 20111130
  Transmission Date: 20120403
  Serious: Yes (Death, Hospitalization)
  Sender: FDA-Public Use
  Company Number: DE-BRISTOL-MYERS SQUIBB COMPANY-16018574

PATIENT
  Age: 49 Year
  Sex: Male
  Weight: 60 kg

DRUGS (1)
  1. YERVOY [Suspect]
     Indication: MALIGNANT MELANOMA
     Dosage: INF.
     Route: 042
     Dates: start: 20110825

REACTIONS (4)
  - METASTATIC MALIGNANT MELANOMA [None]
  - NEOPLASM MALIGNANT [None]
  - PETIT MAL EPILEPSY [None]
  - NEOPLASM PROGRESSION [None]
